FAERS Safety Report 4551635-7 (Version None)
Quarter: 2005Q1

REPORT INFORMATION
  Report Type: 
  Country: None (occurrence: None)
  Receive Date: 20050111
  Receipt Date: 20041227
  Transmission Date: 20050727
  Serious: Yes (Hospitalization)
  Sender: FDA-Public Use
  Company Number: 207273

PATIENT
  Age: 57 Year
  Sex: Female

DRUGS (13)
  1. AVONEX [Suspect]
     Indication: MULTIPLE SCLEROSIS
     Dosage: 30 UG; QW; IM
     Route: 030
     Dates: start: 19981116, end: 20030101
  2. AVONEX [Suspect]
     Indication: MULTIPLE SCLEROSIS
     Dosage: 30 UG; QW; IM
     Route: 030
     Dates: start: 20030101, end: 20041104
  3. SYNTHROID [Concomitant]
  4. PREMARIN [Concomitant]
  5. BACLOFEN [Concomitant]
  6. ZOLOFT [Concomitant]
  7. IMITREX [Concomitant]
  8. KLONOPIN [Concomitant]
  9. BOTOX [Concomitant]
  10. TYLENOL [Concomitant]
  11. ACTONEL [Concomitant]
  12. BEXTRA [Concomitant]
  13. MOBIC [Concomitant]

REACTIONS (5)
  - CARDIAC FAILURE CONGESTIVE [None]
  - CARDIOMYOPATHY [None]
  - MYOCARDIAL ISCHAEMIA [None]
  - SCAR [None]
  - VENTRICULAR HYPOKINESIA [None]
